FAERS Safety Report 19461761 (Version 1)
Quarter: 2021Q2

REPORT INFORMATION
  Report Type: Other
  Country: US (occurrence: US)
  Receive Date: 20210625
  Receipt Date: 20210625
  Transmission Date: 20210717
  Serious: No
  Sender: FDA-Public Use
  Company Number: US-COVIS PHARMA GMBH-AMAG202101087

PATIENT
  Age: 31 Year
  Sex: Female

DRUGS (1)
  1. MAKENA [Suspect]
     Active Substance: HYDROXYPROGESTERONE CAPROATE
     Indication: PREMATURE DELIVERY
     Route: 058
     Dates: start: 20210216, end: 20210309

REACTIONS (2)
  - Inappropriate schedule of product administration [Unknown]
  - Injection site rash [Unknown]

NARRATIVE: CASE EVENT DATE: 2021
